FAERS Safety Report 4656636-6 (Version None)
Quarter: 2005Q2

REPORT INFORMATION
  Report Type: 
  Country: None (occurrence: None)
  Receive Date: 20050506
  Receipt Date: 20050422
  Transmission Date: 20051028
  Serious: Yes (Life-Threatening, Hospitalization)
  Sender: FDA-Public Use
  Company Number: 2005-0008273

PATIENT
  Age: 39 Year
  Sex: Male
  Weight: 67 kg

DRUGS (3)
  1. VIREAD [Suspect]
     Dosage: 300 MG, 1 IN 1 D, ORAL
     Route: 048
     Dates: start: 20030628, end: 20050225
  2. INVIRASE [Concomitant]
  3. KALETRA [Concomitant]

REACTIONS (3)
  - LOSS OF CONSCIOUSNESS [None]
  - RENAL TUBULAR DISORDER [None]
  - TETANY [None]
